FAERS Safety Report 9592408 (Version 1)
Quarter: 2013Q3

REPORT INFORMATION
  Report Type: Spontaneous
  Country: US (occurrence: None)
  Receive Date: 20130930
  Receipt Date: 20130930
  Transmission Date: 20140515
  Serious: Yes (Other)
  Sender: FDA-Public Use
  Company Number: 1000046734

PATIENT
  Age: 84 Year
  Sex: Male
  Weight: 88.45 kg

DRUGS (12)
  1. LINZESS (LINACLOTIDE) (290 MICROGRAM, CAPSULES) [Suspect]
     Indication: CONSTIPATION
     Dosage: 290 MCG (290 MCG, 1 IN 1 D), ORAL
     Route: 048
     Dates: start: 20130708, end: 20130715
  2. NAMENDA (MEMANTINE HYDROCHLORIDE) (MEMANTINE HYDROCHLORIDE) [Concomitant]
  3. K-LOR POTASSIUM CHLORIDE) (POTASSIUM CHLORIDE) [Concomitant]
  4. FUROSEMIDE [Concomitant]
  5. RIVASTIGMINE (RIVASTIGMINE) (RIVASTIGMINE) [Concomitant]
  6. LEVOTHYROXINE (LEVOTHYROXINE SODIUM) (LEVOTHYROXINE SODIUM) [Concomitant]
  7. VALSARTAN (VALSARTAN) [Concomitant]
  8. NEXIUM (ESOMEPRAZOLE) (ESOMEPRAZOLE) [Concomitant]
  9. GEMFIBROZIL (GEMFIBROZIL) (GEMFIBROZIL) [Concomitant]
  10. ALPRAZOLAM (ALPRAZOLAM) (ALPRAZOLAM) [Concomitant]
  11. ATORVASTATIN (ATORVASTATIN) (ATORVASTATIN) [Concomitant]
  12. ASPIRINE (ACETYLSALICYLIC ACID) (ACETYLSALICYLIC ACID) [Concomitant]

REACTIONS (1)
  - Drug ineffective [None]
